FAERS Safety Report 20721205 (Version 1)
Quarter: 2022Q2

REPORT INFORMATION
  Report Type: Report from Study
  Country: RU (occurrence: None)
  Receive Date: 20220418
  Receipt Date: 20220418
  Transmission Date: 20220720
  Serious: Yes (Hospitalization)
  Sender: FDA-Public Use
  Company Number: RU-ROCHE-3048953

PATIENT
  Age: 48 Year
  Sex: Female
  Weight: 105 kg

DRUGS (10)
  1. ADO-TRASTUZUMAB EMTANSINE [Suspect]
     Active Substance: ADO-TRASTUZUMAB EMTANSINE
     Indication: HER2 positive breast cancer
     Dosage: DOSE LAST STUDY DRUG ADMIN PRIOR AE AND SAE: 378 MG/KG?START DATE OF MOST RECENT DOSE OF STUDY DRUG
     Route: 042
     Dates: start: 20220222
  2. ATEZOLIZUMAB [Suspect]
     Active Substance: ATEZOLIZUMAB
     Indication: HER2 positive breast cancer
     Dosage: START DATE OF MOST RECENT DOSE OF STUDY DRUG PRIOR TO AE AND SAE: 22-FEB-2022
     Route: 042
     Dates: start: 20220222
  3. IBUPROFEN [Concomitant]
     Active Substance: IBUPROFEN
     Indication: Pyrexia
     Route: 065
     Dates: start: 20220227, end: 20220309
  4. ACETAMINOPHEN [Concomitant]
     Active Substance: ACETAMINOPHEN
     Indication: Pyrexia
     Route: 065
     Dates: start: 20220308, end: 20220308
  5. LIOTON [Concomitant]
     Indication: Subcutaneous haematoma
  6. STOMATOPHIT [Concomitant]
     Indication: Stomatitis
     Route: 065
     Dates: start: 20220227, end: 20220325
  7. CHAMOMILLAE FLORES [Concomitant]
     Indication: Stomatitis
     Route: 065
     Dates: start: 20220227, end: 20220325
  8. ADEMETIONIN [Concomitant]
     Indication: Prophylaxis
     Route: 065
     Dates: start: 20220222
  9. CEFTRIAXONE [Concomitant]
     Active Substance: CEFTRIAXONE
     Indication: Seroma
     Route: 065
     Dates: start: 20220203, end: 20220205
  10. CHLORAMPHENICOL [Concomitant]
     Active Substance: CHLORAMPHENICOL
     Route: 065
     Dates: start: 20220212, end: 20220218

REACTIONS (2)
  - Febrile neutropenia [Recovered/Resolved]
  - Abdominal pain upper [Recovered/Resolved]

NARRATIVE: CASE EVENT DATE: 20220301
